FAERS Safety Report 21493437 (Version 1)
Quarter: 2022Q4

REPORT INFORMATION
  Report Type: Other
  Country: US (occurrence: None)
  Receive Date: 20221021
  Receipt Date: 20221021
  Transmission Date: 20230113
  Serious: No
  Sender: FDA-Public Use
  Company Number: US-ROCHE-3203706

PATIENT
  Age: 43 Year
  Sex: Female
  Weight: 90.800 kg

DRUGS (15)
  1. OCREVUS [Suspect]
     Active Substance: OCRELIZUMAB
     Indication: Relapsing-remitting multiple sclerosis
     Dosage: 300 MG ON DAY 1 AND DAY 15
     Route: 042
     Dates: start: 202107
  2. LASIX [Concomitant]
     Active Substance: FUROSEMIDE
  3. LYRICA [Concomitant]
     Active Substance: PREGABALIN
  4. CYMBALTA [Concomitant]
     Active Substance: DULOXETINE HYDROCHLORIDE
  5. POTASSIUM [Concomitant]
     Active Substance: POTASSIUM
  6. ABILIFY [Concomitant]
     Active Substance: ARIPIPRAZOLE
  7. CLONAZEPAM [Concomitant]
     Active Substance: CLONAZEPAM
  8. ADDERALL [Concomitant]
     Active Substance: AMPHETAMINE ASPARTATE\AMPHETAMINE SULFATE\DEXTROAMPHETAMINE SACCHARATE\DEXTROAMPHETAMINE SULFATE
  9. BACLOFEN [Concomitant]
     Active Substance: BACLOFEN
  10. PROTONIX (UNK INGREDIENTS) [Concomitant]
  11. SINGULAIR [Concomitant]
     Active Substance: MONTELUKAST SODIUM
  12. IBUPROFEN [Concomitant]
     Active Substance: IBUPROFEN
  13. EPIPEN [Concomitant]
     Active Substance: EPINEPHRINE
  14. ALBUTEROL [Concomitant]
     Active Substance: ALBUTEROL
  15. DIFLUCAN [Concomitant]
     Active Substance: FLUCONAZOLE

REACTIONS (8)
  - B-lymphocyte abnormalities [Not Recovered/Not Resolved]
  - Oedema peripheral [Recovering/Resolving]
  - Pruritus [Recovered/Resolved]
  - Burning sensation [Recovered/Resolved]
  - Rheumatoid arthritis [Not Recovered/Not Resolved]
  - Weight increased [Not Recovered/Not Resolved]
  - Benign breast neoplasm [Recovered/Resolved]
  - Oral candidiasis [Recovered/Resolved]

NARRATIVE: CASE EVENT DATE: 20220201
